FAERS Safety Report 21334417 (Version 1)
Quarter: 2022Q3

REPORT INFORMATION
  Report Type: Spontaneous
  Country: CA (occurrence: CA)
  Receive Date: 20220914
  Receipt Date: 20220914
  Transmission Date: 20221027
  Serious: Yes (Death, Hospitalization, Other)
  Sender: FDA-Public Use
  Company Number: CA-SLATE RUN PHARMACEUTICALS-22CA001312

PATIENT

DRUGS (13)
  1. GANCICLOVIR [Suspect]
     Active Substance: GANCICLOVIR
     Indication: Encephalitis cytomegalovirus
     Dosage: 2.5 MILLIGRAM PER KILOGRAM
     Route: 042
  2. GANCICLOVIR [Suspect]
     Active Substance: GANCICLOVIR
     Dosage: 1.25 MILLIGRAM PER KILOGRAM
     Route: 042
  3. GANCICLOVIR [Suspect]
     Active Substance: GANCICLOVIR
     Dosage: 2.5 MILLIGRAM PER KILOGRAM
     Route: 042
  4. GANCICLOVIR [Suspect]
     Active Substance: GANCICLOVIR
     Dosage: 5 MILLIGRAM PER KILOGRAM
     Route: 042
  5. GANCICLOVIR [Suspect]
     Active Substance: GANCICLOVIR
     Dosage: 7.5 MILLIGRAM PER KILOGRAM, BID
     Route: 042
  6. GANCICLOVIR [Suspect]
     Active Substance: GANCICLOVIR
     Dosage: 5 MILLIGRAM PER KILOGRAM, BID
     Route: 042
  7. FOSCARNET [Suspect]
     Active Substance: FOSCARNET
     Indication: Encephalitis cytomegalovirus
     Dosage: 180 MILLIGRAM PER KILOGRAM
     Route: 042
  8. HUMAN CYTOMEGALOVIRUS IMMUNE GLOBULIN [Suspect]
     Active Substance: HUMAN CYTOMEGALOVIRUS IMMUNE GLOBULIN
     Indication: Encephalitis cytomegalovirus
     Dosage: 0.5 GRAM
     Route: 037
  9. HUMAN CYTOMEGALOVIRUS IMMUNE GLOBULIN [Suspect]
     Active Substance: HUMAN CYTOMEGALOVIRUS IMMUNE GLOBULIN
     Dosage: 0.25 GRAM
     Route: 037
  10. FLUDARABINE [Concomitant]
     Active Substance: FLUDARABINE PHOSPHATE
     Indication: Bone marrow conditioning regimen
     Dosage: 30 MILLIGRAM PER CUBIC METRE X 3 DS
  11. THYMOGLOBULIN [Concomitant]
     Active Substance: LAPINE T-LYMPHOCYTE IMMUNE GLOBULIN
     Indication: Prophylaxis against graft versus host disease
     Dosage: 2 MILLIGRAM PER KILOGRAM
  12. CYCLOPHOSPHAMIDE [Concomitant]
     Active Substance: CYCLOPHOSPHAMIDE
     Indication: Prophylaxis against graft versus host disease
     Dosage: 50 MILLIGRAM PER KILOGRAM X 2 DAYS
  13. CYCLOSPORINE [Concomitant]
     Active Substance: CYCLOSPORINE
     Indication: Prophylaxis against graft versus host disease

REACTIONS (11)
  - Encephalitis cytomegalovirus [Fatal]
  - Respiratory distress [Unknown]
  - Myelosuppression [Unknown]
  - Pulmonary toxicity [Unknown]
  - Nephropathy toxic [Unknown]
  - Acute kidney injury [Unknown]
  - Treatment failure [Unknown]
  - BK virus infection [Unknown]
  - Cystitis haemorrhagic [Unknown]
  - Generalised oedema [Unknown]
  - Pancytopenia [Not Recovered/Not Resolved]
